FAERS Safety Report 7370958-X (Version None)
Quarter: 2011Q1

REPORT INFORMATION
  Report Type: 
  Country: None (occurrence: None)
  Receive Date: 20110324
  Receipt Date: 20110310
  Transmission Date: 20110831
  Serious: No
  Sender: FDA-Public Use
  Company Number: US-BIOGENIDEC-2011BI010501

PATIENT
  Sex: Female

DRUGS (3)
  1. TYSABRI [Suspect]
     Indication: MULTIPLE SCLEROSIS
     Route: 042
     Dates: start: 20101204
  2. TYSABRI [Suspect]
     Route: 042
     Dates: start: 20080317, end: 20080611
  3. TYSABRI [Suspect]
     Route: 042
     Dates: start: 20081009, end: 20091109

REACTIONS (2)
  - MUSCULOSKELETAL DISORDER [None]
  - BALANCE DISORDER [None]
